FAERS Safety Report 16351499 (Version 16)
Quarter: 2022Q4

REPORT INFORMATION
  Report Type: Spontaneous
  Country: GB (occurrence: GB)
  Receive Date: 20190524
  Receipt Date: 20221117
  Transmission Date: 20230112
  Serious: Yes (Death, Other)
  Sender: FDA-Public Use
  Company Number: GB-PFIZER INC-2019211267

PATIENT
  Age: 39 Year
  Sex: Male
  Weight: 91 kg

DRUGS (24)
  1. DIAZEPAM [Interacting]
     Active Substance: DIAZEPAM
     Indication: Product used for unknown indication
     Route: 065
  2. CODEINE [Interacting]
     Active Substance: CODEINE
     Indication: Product used for unknown indication
     Dosage: S-CODEINE-CNS-OPIOID
     Route: 065
  3. PREGABALIN [Interacting]
     Active Substance: PREGABALIN
     Indication: Product used for unknown indication
     Dosage: MEDICATION ERROR
     Route: 065
     Dates: start: 20181027, end: 20181027
  4. PREGABALIN [Interacting]
     Active Substance: PREGABALIN
     Route: 065
     Dates: start: 20181027, end: 20181027
  5. MORPHINE SULFATE [Interacting]
     Active Substance: MORPHINE SULFATE
     Indication: Product used for unknown indication
     Route: 065
  6. BUPRENORPHINE [Suspect]
     Active Substance: BUPRENORPHINE
     Indication: Drug rehabilitation
     Route: 065
  7. BUPRENORPHINE [Suspect]
     Active Substance: BUPRENORPHINE
     Indication: Drug dependence
     Route: 065
     Dates: start: 20181027
  8. BUPRENORPHINE [Suspect]
     Active Substance: BUPRENORPHINE
     Indication: Drug dependence
  9. ALCOHOL [Interacting]
     Active Substance: ALCOHOL
     Indication: Product used for unknown indication
     Route: 065
  10. CODEINE PHOSPHATE [Suspect]
     Active Substance: CODEINE PHOSPHATE
     Indication: Product used for unknown indication
     Route: 065
  11. ALCOHOL [Interacting]
     Active Substance: ALCOHOL
     Indication: Product used for unknown indication
     Route: 065
  12. COCAINE [Suspect]
     Active Substance: COCAINE
     Indication: Drug rehabilitation
     Route: 065
  13. HEROIN [Suspect]
     Active Substance: DIAMORPHINE
     Indication: Drug rehabilitation
     Route: 065
     Dates: start: 20180127
  14. ACETAMINOPHEN [Concomitant]
     Active Substance: ACETAMINOPHEN
     Indication: Product used for unknown indication
  15. TRAZODONE [Concomitant]
     Active Substance: TRAZODONE HYDROCHLORIDE
     Indication: Product used for unknown indication
  16. TEGRETOL [Concomitant]
     Active Substance: CARBAMAZEPINE
     Indication: Product used for unknown indication
  17. PROPRANOLOL [Concomitant]
     Active Substance: PROPRANOLOL HYDROCHLORIDE
     Indication: Product used for unknown indication
  18. DABIGATRAN [Concomitant]
     Active Substance: DABIGATRAN
     Indication: Product used for unknown indication
  19. CAFFEINE CITRATE [Concomitant]
     Active Substance: CAFFEINE CITRATE
     Indication: Product used for unknown indication
  20. NOSCAPINE [Concomitant]
     Active Substance: NOSCAPINE
     Indication: Product used for unknown indication
  21. ALPRAZOLAM [Concomitant]
     Active Substance: ALPRAZOLAM
     Indication: Product used for unknown indication
     Dosage: INTRACARDIAC USE
     Route: 042
  22. ALPRAZOLAM [Concomitant]
     Active Substance: ALPRAZOLAM
     Dosage: INTRACARDIAC USE
     Route: 016
  23. PAPAVERINE [Concomitant]
     Active Substance: PAPAVERINE
     Indication: Product used for unknown indication
  24. NICOTINE [Concomitant]
     Active Substance: NICOTINE
     Indication: Product used for unknown indication

REACTIONS (7)
  - Toxicity to various agents [Fatal]
  - Drug interaction [Fatal]
  - Alcohol interaction [Fatal]
  - Off label use [Fatal]
  - Overdose [Fatal]
  - Intentional product misuse [Fatal]
  - Product use in unapproved indication [Fatal]

NARRATIVE: CASE EVENT DATE: 20181027
